FAERS Safety Report 10241370 (Version 2)
Quarter: 2014Q3

REPORT INFORMATION
  Report Type: Spontaneous
  Country: US (occurrence: US)
  Receive Date: 20140617
  Receipt Date: 20140729
  Transmission Date: 20150326
  Serious: No
  Sender: FDA-Public Use
  Company Number: US-009507513-1406USA006611

PATIENT
  Sex: Female

DRUGS (1)
  1. NUVARING [Suspect]
     Active Substance: ETHINYL ESTRADIOL\ETONOGESTREL
     Dosage: USES NUVARING FOR 3 WEEKS, FOLLOWED BY A RING FREE WEEK
     Route: 067
     Dates: start: 2008

REACTIONS (5)
  - No adverse event [Unknown]
  - Product packaging issue [Unknown]
  - Product colour issue [Unknown]
  - Inappropriate schedule of drug administration [Unknown]
  - Product physical issue [Unknown]

NARRATIVE: CASE EVENT DATE: 20140609
